FAERS Safety Report 18216642 (Version 1)
Quarter: 2020Q3

REPORT INFORMATION
  Report Type: Spontaneous
  Country: US (occurrence: US)
  Receive Date: 20200901
  Receipt Date: 20200901
  Transmission Date: 20201103
  Serious: No
  Sender: FDA-Public Use
  Company Number: US-GLAXOSMITHKLINE-US2020174003

PATIENT
  Age: 40 Year
  Sex: Male

DRUGS (2)
  1. ALLI [Suspect]
     Active Substance: ORLISTAT
     Dosage: 1 CAPSULE, TID
     Dates: end: 20200820
  2. ALLI [Suspect]
     Active Substance: ORLISTAT
     Indication: WEIGHT LOSS DIET
     Dosage: 1 CAPSULE, TID
     Dates: start: 20200605

REACTIONS (2)
  - Drug ineffective [Unknown]
  - Weight increased [Unknown]
